FAERS Safety Report 12283659 (Version 1)
Quarter: 2016Q2

REPORT INFORMATION
  Report Type: Spontaneous
  Country: US (occurrence: US)
  Receive Date: 20160419
  Receipt Date: 20160419
  Transmission Date: 20160815
  Serious: Yes (Hospitalization, Other)
  Sender: FDA-Public Use
  Company Number: US-MDT-ADR-2016-00713

PATIENT
  Sex: Female

DRUGS (2)
  1. MORPHINE [Suspect]
     Active Substance: MORPHINE
     Dosage: 0.9281 MG/DAY
     Route: 037
  2. BACLOFEN. [Suspect]
     Active Substance: BACLOFEN
     Dosage: 605.3 MCG/DAY
     Route: 037

REACTIONS (9)
  - Altered state of consciousness [Unknown]
  - No therapeutic response [Unknown]
  - Adverse drug reaction [Unknown]
  - Muscle spasms [Unknown]
  - Overdose [Unknown]
  - Gait disturbance [Unknown]
  - Muscle spasticity [Unknown]
  - Urinary tract infection [Unknown]
  - Multiple sclerosis relapse [Unknown]

NARRATIVE: CASE EVENT DATE: 2014
